FAERS Safety Report 8070011-6 (Version None)
Quarter: 2012Q1

REPORT INFORMATION
  Report Type: 
  Country: None (occurrence: None)
  Receive Date: 20120125
  Receipt Date: 20120120
  Transmission Date: 20120608
  Serious: Yes (Other)
  Sender: FDA-Public Use
  Company Number: US-AMGEN-USASP2010009669

PATIENT
  Age: 52 Year
  Sex: Female
  Weight: 55.782 kg

DRUGS (3)
  1. ENBREL [Suspect]
     Indication: RHEUMATOID ARTHRITIS
     Dosage: 50 MG, QWK
     Route: 058
     Dates: start: 20101201
  2. ENBREL [Suspect]
     Dosage: 50 MG, QMO
     Route: 058
     Dates: start: 19990101
  3. ENBREL [Suspect]
     Dosage: 50 MG, QMO
     Route: 058
     Dates: start: 20101108

REACTIONS (5)
  - GAIT DISTURBANCE [None]
  - INJECTION SITE PAIN [None]
  - HYPOAESTHESIA [None]
  - INTERVERTEBRAL DISC DEGENERATION [None]
  - RHEUMATOID ARTHRITIS [None]
